FAERS Safety Report 5913901-X (Version None)
Quarter: 2008Q4

REPORT INFORMATION
  Report Type: 
  Country: None (occurrence: None)
  Receive Date: 20081009
  Receipt Date: 20080929
  Transmission Date: 20090506
  Serious: Yes (Hospitalization)
  Sender: FDA-Public Use
  Company Number: B0539231A

PATIENT
  Age: 76 Year
  Sex: Male

DRUGS (2)
  1. DEROXAT [Suspect]
     Indication: DEPRESSION
     Dosage: 20MG IN THE MORNING
     Route: 048
     Dates: start: 20080501, end: 20080701
  2. DETICENE [Concomitant]
     Route: 065
     Dates: start: 20080617

REACTIONS (7)
  - AGITATION [None]
  - DISINHIBITION [None]
  - HALLUCINATION, AUDITORY [None]
  - HALLUCINATION, VISUAL [None]
  - LOGORRHOEA [None]
  - MANIA [None]
  - SLEEP DISORDER [None]
